FAERS Safety Report 7611064-6 (Version None)
Quarter: 2011Q3

REPORT INFORMATION
  Report Type: 
  Country: None (occurrence: None)
  Receive Date: 20110715
  Receipt Date: 20110713
  Transmission Date: 20111222
  Serious: Yes (Life-Threatening, Hospitalization, Other)
  Sender: FDA-Public Use
  Company Number: JP-B.I. PHARMACEUTICALS,INC./RIDGEFIELD-2011-BP-12680NB

PATIENT
  Sex: Female
  Weight: 53.2 kg

DRUGS (9)
  1. ALDACTONE [Suspect]
     Dosage: 25 MG
     Route: 048
     Dates: start: 20110421, end: 20110427
  2. VALSARTAN  AND HYDROCHLOROTHIAZIDE [Concomitant]
     Dosage: 1DF
     Route: 048
  3. PRADAXA [Suspect]
     Dosage: 220 MG
     Route: 048
     Dates: start: 20110421, end: 20110427
  4. ASPIRIN [Concomitant]
     Dosage: 100 MG
     Route: 048
  5. LASIX [Concomitant]
     Dosage: 80 MG
     Route: 048
     Dates: start: 20110421
  6. LANIRAPID [Concomitant]
     Dosage: 0.025 MG
     Route: 048
  7. DILTIAZEM HCL [Concomitant]
     Dosage: 100 MG
     Route: 048
  8. MUCODYNE [Concomitant]
     Dosage: 1500 MG
     Route: 048
  9. LANSOPRAZOLE [Concomitant]
     Dosage: 15 MG
     Route: 048

REACTIONS (7)
  - MULTI-ORGAN FAILURE [None]
  - TRANSAMINASES INCREASED [None]
  - ACTIVATED PARTIAL THROMBOPLASTIN TIME PROLONGED [None]
  - CARDIO-RESPIRATORY ARREST [None]
  - HYPOGLYCAEMIA [None]
  - INTERNATIONAL NORMALISED RATIO INCREASED [None]
  - BLOOD PRESSURE DECREASED [None]
